FAERS Safety Report 5116955-6 (Version None)
Quarter: 2006Q3

REPORT INFORMATION
  Report Type: 
  Country: None (occurrence: None)
  Receive Date: 20060925
  Receipt Date: 20060717
  Transmission Date: 20061208
  Serious: Yes (Hospitalization)
  Sender: FDA-Public Use
  Company Number: 6024273

PATIENT
  Age: 68 Year
  Sex: Female

DRUGS (6)
  1. DETENSIEL (TABLET) (BISOPROLOL FUMARATE) [Suspect]
     Indication: HYPERTENSION
     Dosage: 10 MG (10 MG,1 IN 1 D)
     Route: 048
     Dates: start: 20060614
  2. DAFALGAN (TABLET) (PARACETAMOL) [Suspect]
     Indication: DRUG USE FOR UNKNOWN INDICATION
     Dosage: 3 GM (3 GM,1 D)
     Route: 048
     Dates: start: 20060614
  3. OFLOXACIN [Suspect]
     Indication: PYELONEPHRITIS
     Dosage: 400 MG (400 MG,1 D)
     Dates: start: 20060614, end: 20060703
  4. TAREG (TABLET) (VALSARTAN) [Suspect]
     Indication: HYPERTENSION
     Dosage: 80 MG (80 MG,1 D)
     Route: 048
     Dates: start: 20060614
  5. RIFADIN [Suspect]
     Indication: PYELONEPHRITIS
     Dosage: 1800 MG (300 MG,6 IN 1 D)
     Route: 048
     Dates: start: 20060614, end: 20060627
  6. AMLOR (5MG, CAPSULE) (AMLODIPINE BESILATE) [Suspect]
     Indication: DRUG USE FOR UNKNOWN INDICATION
     Dosage: 1 DOSAGE FORMS (1 DOSAGE FORMS,1 IN 1 D)
     Route: 048
     Dates: start: 20060614

REACTIONS (2)
  - HEPATITIS [None]
  - HYPERBILIRUBINAEMIA [None]
